FAERS Safety Report 9687736 (Version 1)
Quarter: 2013Q4

REPORT INFORMATION
  Report Type: Spontaneous
  Country: GB (occurrence: None)
  Receive Date: 20131112
  Receipt Date: 20131112
  Transmission Date: 20140711
  Serious: Yes (Other)
  Sender: FDA-Public Use
  Company Number: AUR-APL-2013-01903

PATIENT
  Age: 83 Year
  Sex: Female

DRUGS (11)
  1. SIMVASTATIN (SIMVASTATIN) [Suspect]
     Indication: BLOOD CHOLESTEROL INCREASED
     Route: 048
  2. MIRTAZAPINE (MIRTAZAPINE) [Suspect]
     Indication: DEPRESSION
     Dosage: 1 IN 1 D
     Route: 048
  3. FLUVOXAMINE (FLUVOXAMINE) [Suspect]
     Indication: DEPRESSION
     Route: 048
  4. AMLODIPINE [Concomitant]
  5. ASPIRIN (ACETYLSALICYLIC ACID) [Concomitant]
  6. BISOPROLOL [Concomitant]
  7. CARBOCISTEINE (CARBOCISTEINE) [Concomitant]
  8. CLOPIDOGREL (CLOPIDOGREL) [Concomitant]
  9. FUROSEMIDE [Concomitant]
  10. LANSOPRAZOLE [Concomitant]
  11. RAMIPRIL [Concomitant]

REACTIONS (1)
  - Interstitial lung disease [None]
